FAERS Safety Report 19449387 (Version 3)
Quarter: 2021Q3

REPORT INFORMATION
  Report Type: Spontaneous
  Country: JP (occurrence: JP)
  Receive Date: 20210622
  Receipt Date: 20210722
  Transmission Date: 20211014
  Serious: Yes (Other)
  Sender: FDA-Public Use
  Company Number: JP-OTSUKA-2021_020974

PATIENT
  Age: 61 Year
  Sex: Male

DRUGS (2)
  1. ALDOMET [Suspect]
     Active Substance: METHYLDOPA
     Indication: PRODUCT USED FOR UNKNOWN INDICATION
     Dosage: 500 MG, QD
     Route: 048
     Dates: start: 20210601, end: 20210615
  2. SAMSCA [Suspect]
     Active Substance: TOLVAPTAN
     Indication: CARDIAC FAILURE
     Dosage: 3.75 MG, QD
     Route: 048
     Dates: end: 20210615

REACTIONS (4)
  - Loss of consciousness [Recovered/Resolved]
  - Underdose [Unknown]
  - Fall [Recovered/Resolved]
  - Dizziness [Recovered/Resolved]
